FAERS Safety Report 8150527 (Version 2)
Quarter: 2013Q4

REPORT INFORMATION
  Report Type: Spontaneous
  Country: US (occurrence: US)
  Receive Date: 20110922
  Receipt Date: 20131008
  Transmission Date: 20140711
  Serious: No
  Sender: FDA-Public Use
  Company Number: US-ASTRAZENECA-2010SE36186

PATIENT
  Sex: Male

DRUGS (2)
  1. SEROQUEL [Suspect]
     Route: 048
  2. ACETAMINOPHEN [Interacting]
     Route: 065

REACTIONS (4)
  - Drug interaction [Unknown]
  - Adverse drug reaction [Unknown]
  - Weaning failure [Unknown]
  - Feeling hot [Unknown]
